FAERS Safety Report 6453721-3 (Version None)
Quarter: 2009Q4

REPORT INFORMATION
  Report Type: 
  Country: None (occurrence: None)
  Receive Date: 20091117
  Receipt Date: 20091105
  Transmission Date: 20100525
  Serious: Yes (Hospitalization)
  Sender: FDA-Public Use
  Company Number: 2009-195834-NL

PATIENT
  Age: 22 Year
  Sex: Female

DRUGS (3)
  1. NUVARING [Suspect]
     Indication: CONTRACEPTION
     Dosage: VAG
     Route: 067
     Dates: start: 20070301, end: 20070914
  2. PREDNISONE TAB [Concomitant]
  3. DOXYCYCLINE [Concomitant]

REACTIONS (5)
  - ARTHRALGIA [None]
  - ASTHMA [None]
  - BRONCHITIS [None]
  - FALL [None]
  - PULMONARY EMBOLISM [None]
